FAERS Safety Report 4731191-0 (Version None)
Quarter: 2005Q3

REPORT INFORMATION
  Report Type: 
  Country: None (occurrence: None)
  Receive Date: 20050729
  Receipt Date: 20050729
  Transmission Date: 20060218
  Serious: Yes (Disabling)
  Sender: FDA-Public Use
  Company Number: None

PATIENT
  Sex: Male
  Weight: 79.3795 kg

DRUGS (4)
  1. LEVAQUIN [Suspect]
     Indication: SINUSITIS
     Dosage: 500 MG ONCE DAILY
     Dates: start: 20050301
  2. TOPROL-XL [Concomitant]
  3. CLIDINIUM [Concomitant]
  4. MULTIVITAMIN [Concomitant]

REACTIONS (9)
  - EAR DISCOMFORT [None]
  - FATIGUE [None]
  - HYPERSENSITIVITY [None]
  - MOBILITY DECREASED [None]
  - PAIN [None]
  - PARAESTHESIA [None]
  - PHOTOPHOBIA [None]
  - PRURITUS [None]
  - SHOULDER PAIN [None]
